FAERS Safety Report 18846588 (Version 1)
Quarter: 2021Q1

REPORT INFORMATION
  Report Type: Spontaneous
  Country: CN (occurrence: CN)
  Receive Date: 20210203
  Receipt Date: 20210203
  Transmission Date: 20210419
  Serious: Yes (Hospitalization)
  Sender: FDA-Public Use
  Company Number: CN-ASTRAZENECA-2021A021975

PATIENT
  Age: 20946 Day
  Sex: Male

DRUGS (2)
  1. LINCOMYCIN HYDROCHLORIDE. [Suspect]
     Active Substance: LINCOMYCIN HYDROCHLORIDE
     Indication: POST PROCEDURAL INFECTION
     Route: 041
     Dates: start: 20210110, end: 20210110
  2. PULMICORT RESPULES [Suspect]
     Active Substance: BUDESONIDE
     Indication: BRONCHOSPASM
     Route: 055
     Dates: start: 20210110, end: 20210110

REACTIONS (3)
  - Laryngeal oedema [Unknown]
  - Acute respiratory failure [Unknown]
  - Obstructive airways disorder [Unknown]

NARRATIVE: CASE EVENT DATE: 20210110
